FAERS Safety Report 9931765 (Version 1)
Quarter: 2014Q1

REPORT INFORMATION
  Report Type: Report from Study
  Country: TW (occurrence: TW)
  Receive Date: 20140228
  Receipt Date: 20140228
  Transmission Date: 20141002
  Serious: Yes (Other)
  Sender: FDA-Public Use
  Company Number: TW-ROCHE-1355599

PATIENT
  Age: 85 Year
  Sex: Male

DRUGS (2)
  1. BEVACIZUMAB [Suspect]
     Indication: POLYPOIDAL CHOROIDAL VASCULOPATHY
     Dosage: 0.1 ML, 2.5 MG
     Route: 050
  2. VERTEPORFIN [Suspect]
     Indication: POLYPOIDAL CHOROIDAL VASCULOPATHY
     Dosage: PHOTODYNAMIC THERAPY WITH 6 MG PER SQUARE METER OF BODY SURFACE AREA VIA AN INTRAVENOUS INFUSION OF
     Route: 042

REACTIONS (4)
  - Subretinal fluid [Unknown]
  - Visual acuity reduced [Recovering/Resolving]
  - Retinal haemorrhage [Recovering/Resolving]
  - Off label use [Unknown]
